FAERS Safety Report 23247790 (Version 1)
Quarter: 2023Q4

REPORT INFORMATION
  Report Type: Spontaneous
  Country: US (occurrence: US)
  Receive Date: 20231130
  Receipt Date: 20231130
  Transmission Date: 20240110
  Serious: Yes (Other)
  Sender: FDA-Public Use
  Company Number: US-FreseniusKabi-FK202319432

PATIENT
  Age: 40 Year
  Sex: Female

DRUGS (3)
  1. OXYTOCIN [Suspect]
     Active Substance: OXYTOCIN
     Indication: Labour induction
     Dosage: INTRAVENOUS INFUSION?0.034 UNITS/MIN OVER 36 HOUR
     Route: 042
  2. OXYTOCIN [Suspect]
     Active Substance: OXYTOCIN
     Indication: Postpartum haemorrhage
     Dosage: IV BOLUS?30 UNITS
     Route: 040
  3. OXYTOCIN [Suspect]
     Active Substance: OXYTOCIN

REACTIONS (2)
  - Hyponatraemia [Recovered/Resolved]
  - Maternal exposure during delivery [Unknown]
